FAERS Safety Report 4995437-6 (Version None)
Quarter: 2006Q2

REPORT INFORMATION
  Report Type: 
  Country: None (occurrence: None)
  Receive Date: 20060503
  Receipt Date: 20060426
  Transmission Date: 20061013
  Serious: Yes (Other)
  Sender: FDA-Public Use
  Company Number: 2005BI012932

PATIENT
  Age: 52 Year
  Sex: Female

DRUGS (2)
  1. AVONEX [Suspect]
     Indication: MULTIPLE SCLEROSIS
     Dosage: 30 UG; QW; IM
     Route: 030
     Dates: start: 20050630, end: 20060316
  2. TEGRETOL [Concomitant]

REACTIONS (4)
  - CONVULSION [None]
  - EPILEPSY [None]
  - HEPATIC ENZYME INCREASED [None]
  - MYOCARDIAL INFARCTION [None]
